FAERS Safety Report 7958142-X (Version None)
Quarter: 2011Q4

REPORT INFORMATION
  Report Type: 
  Country: None (occurrence: None)
  Receive Date: 20111201
  Receipt Date: 20111122
  Transmission Date: 20120403
  Serious: Yes (Other)
  Sender: FDA-Public Use
  Company Number: 2011MA016892

PATIENT
  Age: 49 Year
  Sex: Male

DRUGS (4)
  1. ALLOPURINOL [Concomitant]
  2. GAVISCON [Concomitant]
  3. NAPROXEN [Suspect]
     Dates: start: 20111116
  4. AMLODIPINE [Concomitant]

REACTIONS (3)
  - EYE SWELLING [None]
  - EYE PRURITUS [None]
  - EYELID OEDEMA [None]
